FAERS Safety Report 10573328 (Version 2)
Quarter: 2016Q1

REPORT INFORMATION
  Report Type: Spontaneous
  Country: US (occurrence: US)
  Receive Date: 20141110
  Receipt Date: 20160301
  Transmission Date: 20160525
  Serious: Yes (Other)
  Sender: FDA-Public Use
  Company Number: US-BAYER-2014-164418

PATIENT
  Age: 46 Year
  Sex: Female

DRUGS (10)
  1. BYETTA [Concomitant]
     Active Substance: EXENATIDE
     Indication: DIABETES MELLITUS
     Dosage: 5 MCG
  2. KLONOPIN [Concomitant]
     Active Substance: CLONAZEPAM
  3. METFORMIN HCL [Concomitant]
     Active Substance: METFORMIN HYDROCHLORIDE
     Indication: DIABETES MELLITUS
     Dosage: 1000MG TAB, 1 ORAL TWO TIMES DAILY
     Route: 048
  4. AMBIEN [Concomitant]
     Active Substance: ZOLPIDEM TARTRATE
  5. CLARITIN [Concomitant]
     Active Substance: LORATADINE
  6. MIRENA [Suspect]
     Active Substance: LEVONORGESTREL
     Indication: CONTRACEPTION
     Dosage: 20 MCG/24HR, CONT
     Route: 015
     Dates: start: 20090720, end: 20130612
  7. NOVOLOG [Concomitant]
     Active Substance: INSULIN ASPART
  8. LASIX [Concomitant]
     Active Substance: FUROSEMIDE
  9. CYANOCOBALAMIN. [Concomitant]
     Active Substance: CYANOCOBALAMIN
  10. FUROSEMIDE. [Concomitant]
     Active Substance: FUROSEMIDE

REACTIONS (12)
  - Anxiety [None]
  - Emotional distress [None]
  - Depression [None]
  - Medical device pain [None]
  - Injury [None]
  - Device failure [None]
  - Medical device discomfort [None]
  - Pain [None]
  - Scar [None]
  - Procedural pain [None]
  - Dyspareunia [None]
  - Embedded device [None]

NARRATIVE: CASE EVENT DATE: 20130612
